FAERS Safety Report 17514916 (Version 6)
Quarter: 2022Q1

REPORT INFORMATION
  Report Type: Report from Study
  Country: CO (occurrence: CO)
  Receive Date: 20200309
  Receipt Date: 20220315
  Transmission Date: 20220424
  Serious: Yes (Hospitalization, Other)
  Sender: FDA-Public Use
  Company Number: CO-ABBVIE-20K-036-3309440-00

PATIENT
  Sex: Female
  Weight: 64 kg

DRUGS (3)
  1. HUMIRA [Suspect]
     Active Substance: ADALIMUMAB
     Indication: Rheumatoid arthritis
     Route: 058
     Dates: start: 20090812, end: 20200226
  2. HUMIRA [Suspect]
     Active Substance: ADALIMUMAB
     Indication: Rheumatoid arthritis
     Route: 058
     Dates: end: 20220120
  3. HUMIRA [Suspect]
     Active Substance: ADALIMUMAB
     Route: 058

REACTIONS (16)
  - Pallor [Recovering/Resolving]
  - Defaecation urgency [Recovering/Resolving]
  - Decreased appetite [Recovering/Resolving]
  - Feeling cold [Recovering/Resolving]
  - Blood pressure abnormal [Recovering/Resolving]
  - Blood glucose abnormal [Recovering/Resolving]
  - Hyperhidrosis [Recovering/Resolving]
  - Breast cancer female [Recovered/Resolved]
  - Bladder cancer [Recovering/Resolving]
  - Nausea [Recovering/Resolving]
  - Hypertension [Unknown]
  - Pain [Recovered/Resolved]
  - Unevaluable event [Recovering/Resolving]
  - Asthenia [Not Recovered/Not Resolved]
  - Fatigue [Not Recovered/Not Resolved]
  - Gait inability [Unknown]

NARRATIVE: CASE EVENT DATE: 20150101
